FAERS Safety Report 16160303 (Version 1)
Quarter: 2019Q2

REPORT INFORMATION
  Report Type: Spontaneous
  Country: US (occurrence: US)
  Receive Date: 20190404
  Receipt Date: 20190404
  Transmission Date: 20190711
  Serious: Yes (Disabling, Other)
  Sender: FDA-Public Use
  Company Number: US-C B FLEET CO INC-201903-US-000776

PATIENT
  Sex: Male

DRUGS (2)
  1. GOODYS EXTRA STRENGTH [Suspect]
     Active Substance: ACETAMINOPHEN\ASPIRIN\CAFFEINE
     Indication: PRODUCT USED FOR UNKNOWN INDICATION
     Route: 048
  2. DIALYSIS [Concomitant]
     Active Substance: UNSPECIFIED INGREDIENT

REACTIONS (3)
  - Incorrect product administration duration [None]
  - Renal failure [Not Recovered/Not Resolved]
  - Liver injury [Unknown]
